FAERS Safety Report 15700094 (Version 2)
Quarter: 2020Q1

REPORT INFORMATION
  Report Type: Spontaneous
  Country: US (occurrence: US)
  Receive Date: 20181207
  Receipt Date: 20200309
  Transmission Date: 20200409
  Serious: Yes (Other)
  Sender: FDA-Public Use
  Company Number: US-ASTRAZENECA-2018SF58084

PATIENT
  Age: 59 Year
  Sex: Female
  Weight: 72.6 kg

DRUGS (31)
  1. OMEPRAZOLE. [Suspect]
     Active Substance: OMEPRAZOLE
     Indication: GASTROOESOPHAGEAL REFLUX DISEASE
     Dosage: 40.0MG UNKNOWN
     Route: 048
     Dates: start: 2016
  2. TUMS [Concomitant]
     Active Substance: CALCIUM CARBONATE
  3. DIAZEPAM. [Concomitant]
     Active Substance: DIAZEPAM
     Dates: start: 20160202
  4. OXYCODONE AND ACETAMINOPHEN [Concomitant]
     Active Substance: ACETAMINOPHEN\OXYCODONE HYDROCHLORIDE
     Dates: start: 20160205
  5. MUPIROCIN. [Concomitant]
     Active Substance: MUPIROCIN
     Dates: start: 20160419
  6. NEXIUM [Suspect]
     Active Substance: ESOMEPRAZOLE MAGNESIUM
     Indication: GASTROOESOPHAGEAL REFLUX DISEASE
     Route: 048
     Dates: start: 20160204, end: 20170731
  7. METHYLPRED [Concomitant]
     Active Substance: METHYLPREDNISOLONE
     Dates: start: 20160303
  8. BACLOFEN. [Concomitant]
     Active Substance: BACLOFEN
     Dates: start: 20160409
  9. VOLTAREN [Concomitant]
     Active Substance: DICLOFENAC SODIUM
     Dates: start: 20160504
  10. LIDOCAINE. [Concomitant]
     Active Substance: LIDOCAINE
     Dates: start: 20160527
  11. NEXIUM [Suspect]
     Active Substance: ESOMEPRAZOLE MAGNESIUM
     Indication: GASTROOESOPHAGEAL REFLUX DISEASE
     Dosage: 20.0MG UNKNOWN
     Route: 048
     Dates: start: 2016
  12. OMEPRAZOLE. [Suspect]
     Active Substance: OMEPRAZOLE
     Indication: GASTROOESOPHAGEAL REFLUX DISEASE
     Dosage: 40.0MG UNKNOWN
     Route: 048
     Dates: start: 20160415
  13. SEROQUEL XR [Concomitant]
     Active Substance: QUETIAPINE FUMARATE
     Dates: start: 20160202
  14. AMLODIPINE [Concomitant]
     Active Substance: AMLODIPINE BESYLATE
     Dates: start: 20160204
  15. CYCLOBENZAPR [Concomitant]
     Active Substance: CYCLOBENZAPRINE
     Dates: start: 20160205
  16. LEVOTHYROXIN [Concomitant]
     Active Substance: LEVOTHYROXINE
     Dates: start: 20160219
  17. PROVENTIL [Concomitant]
     Active Substance: ALBUTEROL
     Dates: start: 20160403
  18. VITAMIN D2 [Concomitant]
     Active Substance: ERGOCALCIFEROL
     Dates: start: 20160219
  19. GABAPENTIN. [Concomitant]
     Active Substance: GABAPENTIN
     Dates: start: 20160330
  20. PREDNISOLONE. [Concomitant]
     Active Substance: PREDNISOLONE
     Dates: start: 20160405
  21. LISINOPRIL. [Concomitant]
     Active Substance: LISINOPRIL
     Dates: start: 20160407
  22. FUROSEMIDE. [Concomitant]
     Active Substance: FUROSEMIDE
     Dates: start: 20160502
  23. ROLAIDS [Concomitant]
     Active Substance: CALCIUM CARBONATE\MAGNESIUM HYDROXIDE
  24. TIZANIDINE. [Concomitant]
     Active Substance: TIZANIDINE
     Dates: start: 20160303
  25. NEXIUM [Suspect]
     Active Substance: ESOMEPRAZOLE MAGNESIUM
     Indication: GASTROOESOPHAGEAL REFLUX DISEASE
     Dosage: 20.0MG UNKNOWN
     Route: 048
     Dates: start: 20160509
  26. DIVALPROEX [Concomitant]
     Active Substance: DIVALPROEX SODIUM
     Dates: start: 20160202
  27. PROMETHAZINE [Concomitant]
     Active Substance: PROMETHAZINE HYDROCHLORIDE
     Dates: start: 20160204
  28. POT CL MICRO [Concomitant]
     Dates: start: 20160204
  29. LACTULOSE. [Concomitant]
     Active Substance: LACTULOSE
     Dates: start: 20160205
  30. CITALOPRAM [Concomitant]
     Active Substance: CITALOPRAM HYDROBROMIDE
     Dates: start: 20160324
  31. HYDROXY HCL [Concomitant]
     Dates: start: 20160419

REACTIONS (2)
  - Renal failure [Not Recovered/Not Resolved]
  - Acute kidney injury [Unknown]

NARRATIVE: CASE EVENT DATE: 2015
